FAERS Safety Report 9996060 (Version 1)
Quarter: 2014Q1

REPORT INFORMATION
  Report Type: Spontaneous
  Country: US (occurrence: None)
  Receive Date: 20140228
  Receipt Date: 20140228
  Transmission Date: 20141002
  Serious: Yes (Hospitalization)
  Sender: FDA-Public Use
  Company Number: US-JNJFOC-20130212637

PATIENT
  Age: 80 Year
  Sex: Female
  Weight: 56.7 kg

DRUGS (5)
  1. IBUPROFEN [Suspect]
     Indication: TEMPOROMANDIBULAR JOINT SYNDROME
     Dates: start: 201209, end: 2012
  2. LIPITOR [Suspect]
     Indication: CARDIAC DISORDER
     Dosage: 40 MG, 1 IN 1 D, ORAL
     Route: 048
  3. PLAVIX [Suspect]
     Indication: PRODUCT USED FOR UNKNOWN INDICATION
     Dosage: 75 MG, 1 IN 1 D
     Dates: start: 2012, end: 2012
  4. METFORMIN (METFORMIN) [Concomitant]
  5. TRIAMTERENE AND HYDROCHLOROTHIZIDE (DYAZIDE) [Concomitant]

REACTIONS (6)
  - Gastrointestinal haemorrhage [None]
  - Pancreatitis acute [None]
  - Vomiting [None]
  - Drug ineffective [None]
  - Weight fluctuation [None]
  - Nausea [None]
